FAERS Safety Report 8978207 (Version 1)
Quarter: 2012Q4

REPORT INFORMATION
  Report Type: 
  Country: US (occurrence: US)
  Receive Date: 20121220
  Receipt Date: 20121220
  Transmission Date: 20130627
  Serious: Yes (Other)
  Sender: FDA-Public Use
  Company Number: PHHY2012US117000

PATIENT
  Age: 71 Year
  Sex: Male

DRUGS (1)
  1. METFORMIN [Suspect]
     Indication: HYPERGLYCAEMIA

REACTIONS (4)
  - Pseudoporphyria [Recovering/Resolving]
  - Blister [Recovering/Resolving]
  - Scar [Unknown]
  - Skin fragility [Unknown]
